FAERS Safety Report 8460684-8 (Version None)
Quarter: 2012Q2

REPORT INFORMATION
  Report Type: 
  Country: None (occurrence: None)
  Receive Date: 20120622
  Receipt Date: 20120615
  Transmission Date: 20120825
  Serious: Yes (Death)
  Sender: FDA-Public Use
  Company Number: GXBR2012US001542

PATIENT
  Age: 52 Year
  Sex: Female

DRUGS (2)
  1. CARDIAC THERAPY [Suspect]
     Dosage: UNK DF, UNK
  2. AZITHROMYCIN [Suspect]
     Dosage: UNK MG, UNK

REACTIONS (1)
  - DEATH [None]
